FAERS Safety Report 7603043-X (Version None)
Quarter: 2011Q3

REPORT INFORMATION
  Report Type: 
  Country: None (occurrence: None)
  Receive Date: 20110712
  Receipt Date: 20110712
  Transmission Date: 20111222
  Serious: No
  Sender: FDA-Public Use
  Company Number: None

PATIENT
  Sex: Male
  Weight: 514.37 kg

DRUGS (2)
  1. VANCOMYCIN [Concomitant]
     Dosage: 1.25 GRAMS
     Route: 042
     Dates: start: 20110701, end: 20110707
  2. VANCOMYCIN [Suspect]
     Indication: POST PROCEDURAL INFECTION
     Dosage: 1.25 GRAMS
     Route: 042
     Dates: start: 20110701, end: 20110707

REACTIONS (2)
  - RASH PRURITIC [None]
  - RASH ERYTHEMATOUS [None]
